FAERS Safety Report 5779724-X (Version None)
Quarter: 2008Q2

REPORT INFORMATION
  Report Type: 
  Country: None (occurrence: None)
  Receive Date: 20080617
  Receipt Date: 20080602
  Transmission Date: 20081010
  Serious: Yes (Other)
  Sender: FDA-Public Use
  Company Number: 2008S1009643

PATIENT
  Age: 60 Year
  Sex: Female

DRUGS (10)
  1. FINASTERIDE [Suspect]
     Indication: ALOPECIA
     Dosage: 5 MG; DAILY; ORAL
     Route: 048
     Dates: start: 20070501
  2. FINASTERIDE [Suspect]
     Indication: BLOOD TESTOSTERONE INCREASED
     Dosage: 5 MG; DAILY; ORAL
     Route: 048
     Dates: start: 20070501
  3. AMLODIPINE [Concomitant]
  4. ATENOLOL [Concomitant]
  5. GLICLAZIDE [Concomitant]
  6. METFORMIN HCL [Concomitant]
  7. RAMIPRIL [Concomitant]
  8. SIMVASTATIN [Concomitant]
  9. SPIRONOLACTONE [Concomitant]
  10. LEVOTHYROXINE SODIUM [Concomitant]

REACTIONS (4)
  - ENDOMETRIAL HYPERTROPHY [None]
  - MENORRHAGIA [None]
  - MENSTRUATION IRREGULAR [None]
  - UTERINE CERVIX STENOSIS [None]
